FAERS Safety Report 11745280 (Version 1)
Quarter: 2015Q4

REPORT INFORMATION
  Report Type: Spontaneous
  Country: IN (occurrence: IN)
  Receive Date: 20151117
  Receipt Date: 20151117
  Transmission Date: 20160304
  Serious: No
  Sender: FDA-Public Use
  Company Number: IN-LUPIN PHARMACEUTICALS INC.-E2B_00004121

PATIENT
  Age: 30 Year
  Sex: Male

DRUGS (1)
  1. L-CIN [Suspect]
     Active Substance: LEVOFLOXACIN
     Indication: PILONIDAL CYST
     Route: 048
     Dates: start: 20150811, end: 20150818

REACTIONS (2)
  - Pruritus [Not Recovered/Not Resolved]
  - Rash [Not Recovered/Not Resolved]

NARRATIVE: CASE EVENT DATE: 20150818
